FAERS Safety Report 7116276-6 (Version None)
Quarter: 2010Q4

REPORT INFORMATION
  Report Type: 
  Country: None (occurrence: None)
  Receive Date: 20101122
  Receipt Date: 20101111
  Transmission Date: 20110411
  Serious: Yes (Hospitalization)
  Sender: FDA-Public Use
  Company Number: US-JNJFOC-20101104978

PATIENT
  Sex: Female
  Weight: 58.1 kg

DRUGS (22)
  1. REMICADE [Suspect]
     Indication: CROHN'S DISEASE
     Route: 042
  2. REMICADE [Suspect]
     Route: 042
  3. MESALAMINE [Concomitant]
     Route: 048
  4. METHOTREXATE [Concomitant]
  5. PROBIOTICS [Concomitant]
  6. HIBICLENS [Concomitant]
  7. VIOKASE 16 [Concomitant]
  8. BACTROBAN NASAL [Concomitant]
  9. ELAVIL [Concomitant]
  10. PREDNISONE [Concomitant]
  11. CREON [Concomitant]
  12. PRILOSEC [Concomitant]
  13. NU-IRON [Concomitant]
  14. CLOTRIMAZOLE [Concomitant]
  15. FOLIC ACID [Concomitant]
  16. VITAMIN D [Concomitant]
  17. LACTAID [Concomitant]
  18. LUXIQ [Concomitant]
  19. ALBUTEROL [Concomitant]
  20. MUTIVITAMINS [Concomitant]
  21. FISH OIL [Concomitant]
  22. SINGULAIR [Concomitant]

REACTIONS (1)
  - DERMATITIS PSORIASIFORM [None]
